FAERS Safety Report 12906149 (Version 1)
Quarter: 2016Q4

REPORT INFORMATION
  Report Type: Spontaneous
  Country: US (occurrence: US)
  Receive Date: 20161103
  Receipt Date: 20161103
  Transmission Date: 20170207
  Serious: Yes (Hospitalization)
  Sender: FDA-Public Use
  Company Number: US-AEGERION PHARMACEUTICAL INC.-AEGR002801

PATIENT
  Age: 33 Year
  Sex: Female

DRUGS (2)
  1. MYALEPT [Suspect]
     Active Substance: METRELEPTIN
     Dosage: 2 MG, BID
     Route: 058
     Dates: start: 201606
  2. MYALEPT [Suspect]
     Active Substance: METRELEPTIN
     Indication: PRODUCT USED FOR UNKNOWN INDICATION
     Dosage: 2 MG, BID
     Route: 058
     Dates: end: 201606

REACTIONS (2)
  - Intestinal obstruction [Unknown]
  - Product used for unknown indication [Unknown]

NARRATIVE: CASE EVENT DATE: 201606
